FAERS Safety Report 6775628-4 (Version None)
Quarter: 2010Q2

REPORT INFORMATION
  Report Type: 
  Country: None (occurrence: None)
  Receive Date: 20100617
  Receipt Date: 20100611
  Transmission Date: 20101027
  Serious: Yes (Hospitalization)
  Sender: FDA-Public Use
  Company Number: US-AMGEN-KDC405837

PATIENT
  Age: 75 Year
  Sex: Male
  Weight: 70 kg

DRUGS (6)
  1. PANITUMUMAB [Suspect]
     Indication: PANCREATIC CARCINOMA
     Route: 042
     Dates: start: 20100216
  2. FLUOROURACIL [Suspect]
     Route: 042
     Dates: start: 20100216
  3. RADIATION THERAPY [Suspect]
     Dates: start: 20100216, end: 20100329
  4. DEXAMETHASONE [Suspect]
  5. OXYCODONE [Suspect]
  6. GEMCITABINE HCL [Suspect]
     Route: 042

REACTIONS (14)
  - DECREASED APPETITE [None]
  - DEHYDRATION [None]
  - DIZZINESS [None]
  - DYSPNOEA [None]
  - FATIGUE [None]
  - HYPERGLYCAEMIA [None]
  - HYPOTENSION [None]
  - LYMPHOPENIA [None]
  - MUSCULAR WEAKNESS [None]
  - NAUSEA [None]
  - PLATELET COUNT DECREASED [None]
  - URINARY TRACT INFECTION [None]
  - VOMITING [None]
  - WEIGHT DECREASED [None]
